FAERS Safety Report 15330228 (Version 1)
Quarter: 2018Q3

REPORT INFORMATION
  Report Type: Spontaneous
  Country: US (occurrence: US)
  Receive Date: 20180824
  Receipt Date: 20180824
  Transmission Date: 20181010
  Serious: Yes (Life-Threatening, Hospitalization, Disabling)
  Sender: FDA-Public Use
  Company Number: None

PATIENT
  Age: 46 Year
  Sex: Female
  Weight: 84.6 kg

DRUGS (8)
  1. MICROGESTIN FE 1/20 [Suspect]
     Active Substance: ETHINYL ESTRADIOL\NORETHINDRONE ACETATE
     Indication: PREMENSTRUAL SYNDROME
     Dosage: ?          QUANTITY:1 TABLET(S);?
     Route: 048
     Dates: start: 20180422, end: 20180730
  2. COLACE [Concomitant]
     Active Substance: DOCUSATE SODIUM
  3. GENERIC PROTONIX [Concomitant]
  4. GENERIC NORCO [Concomitant]
     Active Substance: ACETAMINOPHEN\HYDROCODONE BITARTRATE
  5. STOOL SOFTENER (DOCUSATE) [Concomitant]
     Active Substance: DOCUSATE
  6. STINT IVC FILTER [Concomitant]
  7. WARFARIN [Concomitant]
     Active Substance: WARFARIN
  8. LORAZEPAM. [Concomitant]
     Active Substance: LORAZEPAM

REACTIONS (3)
  - Deep vein thrombosis [None]
  - Procedural pain [None]
  - Visceral venous thrombosis [None]

NARRATIVE: CASE EVENT DATE: 20180702
